FAERS Safety Report 9752236 (Version 1)
Quarter: 2013Q4

REPORT INFORMATION
  Report Type: Spontaneous
  Country: US (occurrence: None)
  Receive Date: 20131211
  Receipt Date: 20131211
  Transmission Date: 20140711
  Serious: Yes (Other)
  Sender: FDA-Public Use
  Company Number: None

PATIENT
  Age: 59 Year
  Sex: Female
  Weight: 140.62 kg

DRUGS (2)
  1. L-THYROXINE [Suspect]
     Indication: HYPOTHYROIDISM
     Route: 048
     Dates: start: 20131018
  2. L-THYROXINE [Suspect]
     Indication: HYPOTHYROIDISM
     Route: 048

REACTIONS (3)
  - Headache [None]
  - Product quality issue [None]
  - Product substitution issue [None]
